FAERS Safety Report 4773449-5 (Version None)
Quarter: 2005Q3

REPORT INFORMATION
  Report Type: 
  Country: None (occurrence: None)
  Receive Date: 20050920
  Receipt Date: 20050909
  Transmission Date: 20060218
  Serious: Yes (Hospitalization)
  Sender: FDA-Public Use
  Company Number: US-JNJFOC-20050903212

PATIENT
  Sex: Male

DRUGS (4)
  1. TYLENOL (CAPLET) [Suspect]
  2. TYLENOL (CAPLET) [Suspect]
  3. LOTREL [Concomitant]
  4. LOTREL [Concomitant]
     Dosage: 20/50 DAILY

REACTIONS (4)
  - ARTHRALGIA [None]
  - BONE INFECTION [None]
  - OEDEMA PERIPHERAL [None]
  - OSTEOMYELITIS [None]
